FAERS Safety Report 9891607 (Version 1)
Quarter: 2014Q1

REPORT INFORMATION
  Report Type: Spontaneous
  Country: US (occurrence: None)
  Receive Date: 20140210
  Receipt Date: 20140210
  Transmission Date: 20141002
  Serious: Yes (Other)
  Sender: FDA-Public Use
  Company Number: 2014P1000777

PATIENT
  Age: 16 Year
  Sex: Female
  Weight: 134.27 kg

DRUGS (1)
  1. MYORISAN 40 MG [Suspect]
     Indication: ACNE CYSTIC
     Route: 048
     Dates: start: 20130923

REACTIONS (2)
  - Depression [None]
  - Blood triglycerides increased [None]
